FAERS Safety Report 4597568-1 (Version None)
Quarter: 2005Q1

REPORT INFORMATION
  Report Type: 
  Country: None (occurrence: None)
  Receive Date: 20050228
  Receipt Date: 20050228
  Transmission Date: 20050727
  Serious: Yes (Life-Threatening, Disabling)
  Sender: FDA-Public Use
  Company Number: None

PATIENT
  Age: 62 Year
  Sex: Female
  Weight: 46.7205 kg

DRUGS (6)
  1. PROTOPIC [Suspect]
     Indication: ECZEMA
     Dosage: ONCE DAILY TOPICALLY
     Route: 061
     Dates: start: 20000101, end: 20030101
  2. ELIDEL [Suspect]
     Indication: ECZEMA
     Dosage: ONCE DAILY TOPICALLY
     Route: 061
     Dates: start: 20010101, end: 20030101
  3. PREMARIN [Concomitant]
  4. FOSAMAX [Concomitant]
  5. SYNTHROID [Concomitant]
  6. ZOLOFT [Concomitant]

REACTIONS (4)
  - APPLICATION SITE ERYTHEMA [None]
  - APPLICATION SITE WARMTH [None]
  - DRUG EFFECT DECREASED [None]
  - MYCOSIS FUNGOIDES [None]
